FAERS Safety Report 6684334-6 (Version None)
Quarter: 2010Q2

REPORT INFORMATION
  Report Type: 
  Country: None (occurrence: None)
  Receive Date: 20100416
  Receipt Date: 20100407
  Transmission Date: 20101027
  Serious: Yes (Other)
  Sender: FDA-Public Use
  Company Number: PHHY2010CA12359

PATIENT
  Sex: Male

DRUGS (10)
  1. ALISKIREN ALI+ [Suspect]
     Indication: HYPERTENSION
     Dosage: 300 MG DAILY
     Route: 048
     Dates: start: 20100113, end: 20100210
  2. ASAPHEN [Concomitant]
     Dosage: 80 MG, DAILY
  3. COVERSYL [Concomitant]
     Dosage: 8 MG, UNK
  4. GLUCOPHAGE [Concomitant]
     Dosage: 850 (UNTIS NOT SPECIFIED) IN THE MORNING AND 500 IN NINGHT
  5. LIPITOR [Concomitant]
  6. DIAMICRON [Concomitant]
  7. LOZIDE [Concomitant]
  8. NORVASC [Concomitant]
  9. NOVOPUROL [Concomitant]
     Dosage: 300 MG, UNK
  10. TENORMIN [Concomitant]
     Dosage: 50 MG, BID

REACTIONS (2)
  - DIZZINESS [None]
  - NAUSEA [None]
